FAERS Safety Report 6423140-4 (Version None)
Quarter: 2009Q4

REPORT INFORMATION
  Report Type: 
  Country: None (occurrence: None)
  Receive Date: 20091028
  Receipt Date: 20091021
  Transmission Date: 20100525
  Serious: Yes (Hospitalization)
  Sender: FDA-Public Use
  Company Number: 014904

PATIENT
  Sex: Male

DRUGS (1)
  1. PRIALT [Suspect]
     Indication: DRUG USE FOR UNKNOWN INDICATION
     Dosage: INTRATHEACAL
     Route: 037

REACTIONS (2)
  - ACUTE HEPATIC FAILURE [None]
  - MULTI-ORGAN FAILURE [None]
